FAERS Safety Report 10663520 (Version 2)
Quarter: 2014Q4

REPORT INFORMATION
  Report Type: Spontaneous
  Country: JP (occurrence: JP)
  Receive Date: 20141219
  Receipt Date: 20141219
  Transmission Date: 20150529
  Serious: Yes (Other)
  Sender: FDA-Public Use
  Company Number: JP-ORION CORPORATION ORION PHARMA-ENT 2007-0209

PATIENT
  Age: 81 Year
  Sex: Male

DRUGS (9)
  1. COMTAN [Suspect]
     Active Substance: ENTACAPONE
     Indication: DRUG EFFECT DECREASED
     Route: 048
     Dates: start: 20070921, end: 20071109
  2. FP (SELEGILINE) [Concomitant]
     Route: 065
  3. NEO DOPASTON [Concomitant]
     Route: 065
  4. TETRAMIDE [Concomitant]
     Active Substance: MIANSERIN
     Route: 065
  5. AMOBAN [Concomitant]
     Active Substance: ZOPICLONE
     Route: 065
  6. SEROQUEL [Concomitant]
     Active Substance: QUETIAPINE FUMARATE
     Route: 065
  7. COMTAN [Suspect]
     Active Substance: ENTACAPONE
     Indication: PARKINSON^S DISEASE
  8. PERMAX [Concomitant]
     Active Substance: PERGOLIDE
     Route: 065
  9. MADOPAR [Concomitant]
     Active Substance: BENSERAZIDE HYDROCHLORIDE\LEVODOPA
     Route: 065

REACTIONS (3)
  - Pyrexia [Recovered/Resolved]
  - Anaemia [Recovered/Resolved]
  - Blood potassium decreased [Recovered/Resolved]

NARRATIVE: CASE EVENT DATE: 20071012
